FAERS Safety Report 21206249 (Version 2)
Quarter: 2022Q3

REPORT INFORMATION
  Report Type: Report from Study
  Country: US (occurrence: US)
  Receive Date: 20220812
  Receipt Date: 20220819
  Transmission Date: 20221026
  Serious: Yes (Other)
  Sender: FDA-Public Use
  Company Number: US-BRISTOL-MYERS SQUIBB COMPANY-2022-084661

PATIENT
  Age: 31 Year
  Sex: Male
  Weight: 70.31 kg

DRUGS (12)
  1. ZEPOSIA [Suspect]
     Active Substance: OZANIMOD HYDROCHLORIDE
     Indication: Colitis ulcerative
     Dosage: DAILY
     Route: 048
     Dates: start: 20220422
  2. ZEPOSIA [Suspect]
     Active Substance: OZANIMOD HYDROCHLORIDE
     Dosage: DOSE : UNAVAILABLE;     FREQ : EVERY DAY AT 9AM
     Route: 065
     Dates: start: 20220402
  3. TRAMADOL [Concomitant]
     Active Substance: TRAMADOL
     Indication: Product used for unknown indication
     Route: 065
  4. BRIVIACT [Concomitant]
     Active Substance: BRIVARACETAM
     Indication: Product used for unknown indication
     Route: 065
  5. ZOLOFT [Concomitant]
     Active Substance: SERTRALINE HYDROCHLORIDE
     Indication: Seizure
     Route: 065
  6. SEROQUEL [Concomitant]
     Active Substance: QUETIAPINE FUMARATE
     Indication: Product used for unknown indication
     Route: 065
  7. SEROQUEL [Concomitant]
     Active Substance: QUETIAPINE FUMARATE
     Indication: Agitation
     Dosage: UPTO 100MG PRN
  8. POTASSIUM CHLORIDE [Concomitant]
     Active Substance: POTASSIUM CHLORIDE
     Indication: Nephrolithiasis
     Dosage: 2 TABLETS
     Route: 048
  9. MESALAMINE [Concomitant]
     Active Substance: MESALAMINE
     Indication: Product used for unknown indication
     Dosage: 4 TS OTC
     Route: 048
  10. VITAMIN D [Concomitant]
     Active Substance: VITAMIN D NOS
     Indication: Product used for unknown indication
     Route: 065
  11. MG [MAGNESIUM SULFATE] [Concomitant]
     Indication: Product used for unknown indication
  12. LOPEZ [LORAZEPAM] [Concomitant]
     Indication: Product used for unknown indication
     Route: 065

REACTIONS (10)
  - Respiratory tract infection [Unknown]
  - Seizure [Unknown]
  - Back pain [Unknown]
  - Nasopharyngitis [Unknown]
  - Aggression [Unknown]
  - Heart rate irregular [Unknown]
  - Mood altered [Unknown]
  - Cough [Unknown]
  - Oropharyngeal pain [Unknown]
  - Pneumonia [Unknown]

NARRATIVE: CASE EVENT DATE: 20220701
